FAERS Safety Report 7270078-9 (Version None)
Quarter: 2011Q1

REPORT INFORMATION
  Report Type: 
  Country: None (occurrence: None)
  Receive Date: 20110125
  Receipt Date: 20110125
  Transmission Date: 20110831
  Serious: Yes (Life-Threatening, Hospitalization)
  Sender: FDA-Public Use
  Company Number: None

PATIENT
  Age: 78 Year
  Sex: Male
  Weight: 94.3482 kg

DRUGS (1)
  1. GLYBURIDE [Suspect]

REACTIONS (4)
  - MOVEMENT DISORDER [None]
  - NO THERAPEUTIC RESPONSE [None]
  - INJURY [None]
  - VICTIM OF HOMICIDE [None]
